FAERS Safety Report 24342985 (Version 1)
Quarter: 2024Q3

REPORT INFORMATION
  Report Type: Spontaneous
  Country: US (occurrence: None)
  Receive Date: 20240919
  Receipt Date: 20240919
  Transmission Date: 20241016
  Serious: Yes (Death)
  Sender: Public
  Company Number: None

PATIENT
  Age: 91 Year
  Sex: Female

DRUGS (1)
  1. LENALIDOMIDE [Suspect]
     Active Substance: LENALIDOMIDE
     Indication: Plasma cell myeloma
     Dosage: 10MG QD ORAL
     Route: 048
     Dates: start: 20190830, end: 20240901

REACTIONS (10)
  - Acute kidney injury [None]
  - Clostridium test positive [None]
  - Abdominal wall haematoma [None]
  - Lactic acidosis [None]
  - Hypervolaemia [None]
  - Oliguria [None]
  - Bradycardia [None]
  - Lethargy [None]
  - Disorientation [None]
  - Cardiac arrest [None]

NARRATIVE: CASE EVENT DATE: 20240901
